FAERS Safety Report 11977506 (Version 2)
Quarter: 2016Q1

REPORT INFORMATION
  Report Type: Spontaneous
  Country: JP (occurrence: JP)
  Receive Date: 20160129
  Receipt Date: 20160325
  Transmission Date: 20160526
  Serious: Yes (Other)
  Sender: FDA-Public Use
  Company Number: GXJP2015JP001279

PATIENT
  Age: 21 Year
  Sex: Male

DRUGS (21)
  1. DOXORUBICIN HYDROCHLORIDE INJECTION [Suspect]
     Active Substance: DOXORUBICIN HYDROCHLORIDE
     Dosage: 37.5 MG/M2, QD
     Route: 042
     Dates: start: 20151208, end: 20151209
  2. ENDOXAN [Suspect]
     Active Substance: CYCLOPHOSPHAMIDE
     Dosage: 1200 MG/M2, QD
     Route: 042
     Dates: start: 20160105, end: 20160105
  3. ALOXI [Concomitant]
     Active Substance: PALONOSETRON HYDROCHLORIDE
     Indication: PRODUCT USED FOR UNKNOWN INDICATION
     Route: 042
  4. DOXORUBICIN HYDROCHLORIDE INJECTION [Suspect]
     Active Substance: DOXORUBICIN HYDROCHLORIDE
     Indication: EWING^S SARCOMA
     Dosage: 37.5 MG/M2, QD
     Route: 042
     Dates: start: 20151109, end: 20151110
  5. IFOMIDE [Suspect]
     Active Substance: IFOSFAMIDE
     Dosage: 1.8 G/M2, QD
     Route: 042
     Dates: start: 20160122, end: 20160126
  6. ETOPOSIDE INTRAVENOUS INFUSION [Suspect]
     Active Substance: ETOPOSIDE
     Indication: EWING^S SARCOMA
     Dosage: 100 MG/M2, QD
     Route: 042
     Dates: start: 20151124, end: 20151128
  7. ETOPOSIDE INTRAVENOUS INFUSION [Suspect]
     Active Substance: ETOPOSIDE
     Dosage: 100 MG/M2, QD
     Route: 042
     Dates: start: 20160122, end: 20160126
  8. ONCOVIN [Suspect]
     Active Substance: VINCRISTINE SULFATE
     Indication: EWING^S SARCOMA
     Dosage: 1.5 MG/M2, QD
     Route: 042
     Dates: start: 20151109, end: 20151109
  9. ONCOVIN [Suspect]
     Active Substance: VINCRISTINE SULFATE
     Dosage: 1.5 MG/M2, QD
     Route: 042
     Dates: start: 20160105, end: 20160105
  10. IFOMIDE [Suspect]
     Active Substance: IFOSFAMIDE
     Indication: EWING^S SARCOMA
     Dosage: 1.8 G/M2, QD
     Route: 042
     Dates: start: 20151124, end: 20151128
  11. MEYLON [Concomitant]
     Active Substance: SODIUM BICARBONATE
     Indication: PRODUCT USED FOR UNKNOWN INDICATION
     Route: 042
  12. UROMITEXAN [Concomitant]
     Active Substance: MESNA
     Indication: PRODUCT USED FOR UNKNOWN INDICATION
     Route: 042
  13. ENDOXAN [Suspect]
     Active Substance: CYCLOPHOSPHAMIDE
     Dosage: 1200 MG/M2, QD
     Route: 042
     Dates: start: 20151208, end: 20151208
  14. DOXORUBICIN HYDROCHLORIDE INJECTION [Suspect]
     Active Substance: DOXORUBICIN HYDROCHLORIDE
     Dosage: 37.5 MG/M2, QD
     Route: 042
     Dates: start: 20160105, end: 20160106
  15. ENDOXAN [Suspect]
     Active Substance: CYCLOPHOSPHAMIDE
     Indication: EWING^S SARCOMA
     Dosage: 1200 MG/M2, QD
     Route: 042
     Dates: start: 20151109, end: 20151109
  16. SOLDEM 3A [Concomitant]
     Active Substance: CARBOHYDRATES\POTASSIUM CHLORIDE\SODIUM CHLORIDE\SODIUM LACTATE
     Indication: PRODUCT USED FOR UNKNOWN INDICATION
     Route: 042
  17. DEXART [Concomitant]
     Active Substance: DEXAMETHASONE SODIUM PHOSPHATE
     Indication: PRODUCT USED FOR UNKNOWN INDICATION
     Route: 042
  18. RAMOSETRON HYDROCHLORIDE [Concomitant]
     Active Substance: RAMOSETRON HYDROCHLORIDE
     Indication: PRODUCT USED FOR UNKNOWN INDICATION
     Route: 042
  19. ETOPOSIDE INTRAVENOUS INFUSION [Suspect]
     Active Substance: ETOPOSIDE
     Dosage: 100 MG/M2, QD
     Route: 042
     Dates: start: 20151222, end: 20151226
  20. IFOMIDE [Suspect]
     Active Substance: IFOSFAMIDE
     Dosage: 1.8 G/M2, QD
     Route: 042
     Dates: start: 20151222, end: 20151226
  21. ONCOVIN [Suspect]
     Active Substance: VINCRISTINE SULFATE
     Dosage: 1.5 MG/M2, QD
     Route: 042
     Dates: start: 20151208, end: 20151208

REACTIONS (3)
  - Bone marrow failure [Recovered/Resolved]
  - Nasal discharge discolouration [Unknown]
  - Red blood cell count decreased [Recovering/Resolving]
